FAERS Safety Report 26077797 (Version 1)
Quarter: 2025Q4

REPORT INFORMATION
  Report Type: Spontaneous
  Country: US (occurrence: US)
  Receive Date: 20251122
  Receipt Date: 20251122
  Transmission Date: 20260117
  Serious: Yes (Other)
  Sender: MDD OPERATIONS
  Company Number: US-MDD US Operations-MDD202508-003336

PATIENT
  Age: 89 Year
  Sex: Male
  Weight: 77.11 kg

DRUGS (4)
  1. ONAPGO [Suspect]
     Active Substance: APOMORPHINE HYDROCHLORIDE
     Indication: Parkinson^s disease
     Dosage: LOT AND EXPIRATION DATE: AJ098.24 AND AUG/05/2026 (FOR PUMP)
     Dates: start: 20250825
  2. ONAPGO [Suspect]
     Active Substance: APOMORPHINE HYDROCHLORIDE
     Dosage: 1.5 MG PER HOUR
  3. CARBIDOPA\LEVODOPA [Concomitant]
     Active Substance: CARBIDOPA\LEVODOPA
     Dosage: FOUR TIMES A DAY
  4. VITAMIN B [Concomitant]
     Active Substance: VITAMIN B
     Dosage: ONCE A DAY

REACTIONS (5)
  - Loss of consciousness [Recovered/Resolved]
  - Retching [Recovered/Resolved]
  - Contusion [Recovered/Resolved]
  - Nausea [Recovered/Resolved]
  - Fall [Recovered/Resolved]

NARRATIVE: CASE EVENT DATE: 20250825
